FAERS Safety Report 4440256-2 (Version None)
Quarter: 2004Q3

REPORT INFORMATION
  Report Type: 
  Country: None (occurrence: None)
  Receive Date: 20040903
  Receipt Date: 20040324
  Transmission Date: 20050211
  Serious: No
  Sender: FDA-Public Use
  Company Number: US-GLAXOSMITHKLINE-A0504325A

PATIENT
  Sex: Female

DRUGS (6)
  1. REQUIP [Suspect]
     Indication: ILL-DEFINED DISORDER
     Route: 048
  2. ZELNORM [Concomitant]
  3. KLONOPIN [Concomitant]
  4. ESTRADIOL [Concomitant]
  5. AMBIEN [Concomitant]
  6. PROPYLTHIOURACIL [Concomitant]

REACTIONS (4)
  - BRONCHITIS [None]
  - CHEST DISCOMFORT [None]
  - COUGH [None]
  - RESPIRATORY TRACT CONGESTION [None]
